FAERS Safety Report 16651756 (Version 1)
Quarter: 2019Q3

REPORT INFORMATION
  Report Type: Spontaneous
  Country: US (occurrence: US)
  Receive Date: 20190730
  Receipt Date: 20190730
  Transmission Date: 20191004
  Serious: Yes (Life-Threatening, Hospitalization)
  Sender: FDA-Public Use
  Company Number: None

PATIENT
  Age: 39 Year
  Sex: Male
  Weight: 83.25 kg

DRUGS (5)
  1. TAB-A-VITE [Concomitant]
  2. DAPSONE. [Suspect]
     Active Substance: DAPSONE
     Indication: PNEUMONIA
  3. CALCIUM [Concomitant]
     Active Substance: CALCIUM
  4. DAPSONE. [Suspect]
     Active Substance: DAPSONE
     Indication: PROPHYLAXIS
  5. GENVOYA [Concomitant]
     Active Substance: COBICISTAT\ELVITEGRAVIR\EMTRICITABINE\TENOFOVIR ALAFENAMIDE FUMARATE

REACTIONS (6)
  - Pyrexia [None]
  - Renal failure [None]
  - Urinary retention [None]
  - Anaemia [None]
  - Asthenia [None]
  - Apparent death [None]

NARRATIVE: CASE EVENT DATE: 20100701
